FAERS Safety Report 7410639-7 (Version None)
Quarter: 2011Q2

REPORT INFORMATION
  Report Type: 
  Country: None (occurrence: None)
  Receive Date: 20110413
  Receipt Date: 20101005
  Transmission Date: 20111010
  Serious: Yes (Life-Threatening, Hospitalization, Disabling, Other)
  Sender: FDA-Public Use
  Company Number: US-BAYER-200943645NA

PATIENT
  Age: 31 Year
  Sex: Female
  Weight: 108.84 kg

DRUGS (6)
  1. LISINOPRIL [Concomitant]
     Indication: BIPOLAR DISORDER
  2. DEXAMETHASONE [Concomitant]
  3. RISPERDAL [Concomitant]
     Indication: HYPERTENSION
  4. HYDROCODONE [Concomitant]
  5. YAZ [Suspect]
     Indication: CONTRACEPTION
     Dosage: UNK
     Route: 048
     Dates: start: 20061201, end: 20070101
  6. MELOXICAM [Concomitant]

REACTIONS (7)
  - PERIPHERAL ISCHAEMIA [None]
  - GANGRENE [None]
  - DEEP VEIN THROMBOSIS [None]
  - PAIN [None]
  - HYPOAESTHESIA [None]
  - MENTAL DISORDER [None]
  - PERIPHERAL EMBOLISM [None]
